FAERS Safety Report 6868204-6 (Version None)
Quarter: 2010Q3

REPORT INFORMATION
  Report Type: 
  Country: None (occurrence: None)
  Receive Date: 20100722
  Receipt Date: 20080523
  Transmission Date: 20110219
  Serious: No
  Sender: FDA-Public Use
  Company Number: US-PFIZER INC-2008045590

PATIENT
  Sex: Male
  Weight: 95.6 kg

DRUGS (8)
  1. CHANTIX [Suspect]
     Indication: SMOKING CESSATION THERAPY
     Dates: start: 20080501, end: 20080521
  2. TOPAMAX [Concomitant]
  3. METOPROLOL SUCCINATE [Concomitant]
  4. LISINOPRIL [Concomitant]
  5. ACETYLSALICYLIC ACID [Concomitant]
  6. CRESTOR [Concomitant]
  7. ZYRTEC [Concomitant]
  8. ALEVE (CAPLET) [Concomitant]

REACTIONS (3)
  - DEPRESSION [None]
  - MUSCULAR WEAKNESS [None]
  - SOMNOLENCE [None]
